FAERS Safety Report 16697153 (Version 1)
Quarter: 2019Q3

REPORT INFORMATION
  Report Type: Spontaneous
  Country: US (occurrence: US)
  Receive Date: 20190813
  Receipt Date: 20190813
  Transmission Date: 20191004
  Serious: Yes (Hospitalization)
  Sender: FDA-Public Use
  Company Number: US-PFIZER INC-2019345013

PATIENT
  Age: 82 Year
  Sex: Female
  Weight: 66 kg

DRUGS (2)
  1. IBRANCE [Suspect]
     Active Substance: PALBOCICLIB
     Indication: ABDOMINAL NEOPLASM
  2. IBRANCE [Suspect]
     Active Substance: PALBOCICLIB
     Indication: LIPOSARCOMA
     Dosage: UNK
     Dates: start: 201901, end: 20190615

REACTIONS (4)
  - Asthenia [Unknown]
  - Product use in unapproved indication [Unknown]
  - Off label use [Unknown]
  - Full blood count decreased [Recovered/Resolved with Sequelae]

NARRATIVE: CASE EVENT DATE: 201901
